FAERS Safety Report 9214675 (Version 2)
Quarter: 2014Q1

REPORT INFORMATION
  Report Type: Spontaneous
  Country: US (occurrence: US)
  Receive Date: 20130405
  Receipt Date: 20140116
  Transmission Date: 20141002
  Serious: Yes (Other)
  Sender: FDA-Public Use
  Company Number: US-BAYER-2013-040679

PATIENT
  Age: 27 Year
  Sex: Female

DRUGS (7)
  1. YAZ [Suspect]
     Dosage: UNK
     Dates: start: 200602
  2. YASMIN [Suspect]
     Dosage: UNK
     Dates: start: 200602
  3. DESYREL [Concomitant]
     Dosage: 50 MG, UNK2 TABLETS DAILY
     Route: 048
  4. ZOFRAN [Concomitant]
     Indication: NAUSEA
     Dosage: 4 MG, QID
     Route: 048
  5. OXYCODONE W/PARACETAMOL [Concomitant]
     Dosage: 5-325 MG EVERY 4 HOURS WHEN NEEDED
     Route: 048
  6. GLUCOPHAGE [Concomitant]
     Dosage: 500 MG, UNK2 TABLETS IN THE MORNING AND 1 TABLET IN THE EVENING
     Route: 048
  7. SERTRALINE [Concomitant]
     Dosage: 500 MG, UNK2 TABLETS DAILY
     Route: 048

REACTIONS (5)
  - Gallbladder disorder [None]
  - Cholelithiasis [None]
  - Injury [None]
  - Pain [None]
  - Emotional distress [None]
